FAERS Safety Report 13743908 (Version 5)
Quarter: 2018Q2

REPORT INFORMATION
  Report Type: Report from Study
  Country: US (occurrence: US)
  Receive Date: 20170712
  Receipt Date: 20180430
  Transmission Date: 20180711
  Serious: Yes (Other)
  Sender: FDA-Public Use
  Company Number: PHEH2017US021165

PATIENT
  Age: 52 Year
  Sex: Female

DRUGS (2)
  1. COSENTYX [Suspect]
     Active Substance: SECUKINUMAB
     Indication: PSORIASIS
     Dosage: 300 MG, QMO
     Route: 058
  2. COSENTYX [Suspect]
     Active Substance: SECUKINUMAB
     Indication: PSORIATIC ARTHROPATHY

REACTIONS (6)
  - Psoriasis [Unknown]
  - Product quality issue [Not Recovered/Not Resolved]
  - Cerebrovascular accident [Unknown]
  - Gait inability [Unknown]
  - Psoriatic arthropathy [Unknown]
  - Product storage error [Unknown]

NARRATIVE: CASE EVENT DATE: 20170601
